FAERS Safety Report 22319972 (Version 1)
Quarter: 2023Q2

REPORT INFORMATION
  Report Type: Spontaneous
  Country: IT (occurrence: IT)
  Receive Date: 20230515
  Receipt Date: 20230515
  Transmission Date: 20230722
  Serious: Yes (Hospitalization)
  Sender: FDA-Public Use
  Company Number: None

PATIENT
  Age: 57 Year
  Sex: Male

DRUGS (7)
  1. TEGRETOL [Suspect]
     Active Substance: CARBAMAZEPINE
     Indication: Partial seizures
     Dosage: 1200 MG, QD
     Route: 048
  2. KETOPROFEN LYSINE [Suspect]
     Active Substance: KETOPROFEN LYSINE
     Indication: Toothache
     Dosage: UNK
     Route: 048
     Dates: start: 20230315, end: 20230319
  3. AUGMENTIN [Concomitant]
     Active Substance: AMOXICILLIN\CLAVULANATE POTASSIUM
     Indication: Toothache
     Dosage: UNK
     Route: 065
     Dates: start: 20230315, end: 20230319
  4. PHENOBARBITAL [Concomitant]
     Active Substance: PHENOBARBITAL
     Indication: Partial seizures
     Dosage: 100 MG (100UNITA DI MISURA: MILLIGRAMMI VIA SOMMINISTRAZIONE: ORALE)
     Route: 048
  5. TEGRETOL [Concomitant]
     Active Substance: CARBAMAZEPINE
     Indication: Partial seizures
     Dosage: 200 MG ( 200UNITA DI MISURA: MILLIGRAMMI VIA SOMMINISTRAZIONE: ORALE)
     Route: 048
  6. VALPROATE SODIUM [Concomitant]
     Active Substance: VALPROATE SODIUM
     Indication: Partial seizures
     Dosage: 300 MG (300UNITA DI MISURA: MILLIGRAMMI VIA SOMMINISTRAZIONE: ORALE)
     Route: 048
  7. VALPROATE SODIUM [Concomitant]
     Active Substance: VALPROATE SODIUM
     Dosage: 1500 MG (1500UNITA DI MISURA: MILLIGRAMMI VIA SOMMINISTRAZIONE: ORALE)
     Route: 048

REACTIONS (9)
  - Balance disorder [Recovered/Resolved]
  - Drug interaction [Recovered/Resolved]
  - Toxicity to various agents [Recovered/Resolved]
  - Poverty of speech [Recovered/Resolved]
  - Dyspepsia [Recovered/Resolved]
  - Altered state of consciousness [Recovered/Resolved]
  - Syncope [Recovered/Resolved]
  - Vomiting [Recovered/Resolved]
  - Nausea [Recovered/Resolved]

NARRATIVE: CASE EVENT DATE: 20230315
